FAERS Safety Report 8415335-5 (Version None)
Quarter: 2012Q2

REPORT INFORMATION
  Report Type: 
  Country: None (occurrence: None)
  Receive Date: 20120606
  Receipt Date: 20120524
  Transmission Date: 20120825
  Serious: Yes (Death)
  Sender: FDA-Public Use
  Company Number: PHHY2012FR047984

PATIENT
  Sex: Female
  Weight: 67.8 kg

DRUGS (3)
  1. MYCOPHENOLIC ACID [Suspect]
     Indication: RENAL TRANSPLANT
     Dosage: 180 MG, DAILY
     Route: 048
     Dates: start: 20080822
  2. NEORAL [Suspect]
     Indication: RENAL TRANSPLANT
     Dosage: 125 MG, UNK
     Route: 048
     Dates: start: 20080823
  3. NEORAL [Suspect]
     Dosage: 100 MG, UNK
     Route: 048

REACTIONS (1)
  - DEATH [None]
